FAERS Safety Report 17235820 (Version 1)
Quarter: 2020Q1

REPORT INFORMATION
  Report Type: Spontaneous
  Country: DK (occurrence: DK)
  Receive Date: 20200106
  Receipt Date: 20200106
  Transmission Date: 20200409
  Serious: Yes (Death, Hospitalization)
  Sender: FDA-Public Use
  Company Number: DK-ACCORD-168585

PATIENT
  Age: 88 Year
  Sex: Female

DRUGS (7)
  1. PARACETAMOL [Concomitant]
     Active Substance: ACETAMINOPHEN
     Indication: PAIN
     Dosage: STYRKE: 665 MG.
     Route: 048
     Dates: start: 20191024
  2. LOSARTAN. [Concomitant]
     Active Substance: LOSARTAN
     Indication: HYPERTENSION
     Dosage: STYRKE: 100 MG.
     Route: 048
     Dates: start: 20140405
  3. UNIKALK MED D-VITAMIN [Concomitant]
     Indication: MINERAL SUPPLEMENTATION
     Dosage: STRENGTH:: 400 MG + 19 MICROGRAM
     Route: 048
     Dates: start: 20150625
  4. SERTRALINE [Concomitant]
     Active Substance: SERTRALINE HYDROCHLORIDE
     Indication: DEPRESSION
     Dosage: STYRKE: 50 MG.
     Route: 048
     Dates: start: 20180419
  5. LETROZOLE. [Concomitant]
     Active Substance: LETROZOLE
     Indication: BREAST CANCER
     Dosage: STYRKE: 2.5 MG.
     Route: 048
     Dates: start: 20150625
  6. CLOPIDOGREL [Suspect]
     Active Substance: CLOPIDOGREL BISULFATE
     Indication: THROMBOSIS PROPHYLAXIS
     Dosage: STRENGTH: 75 MG
     Route: 048
     Dates: start: 20170809, end: 20191204
  7. MAGNESIA MEDIC [Concomitant]
     Indication: CONSTIPATION
     Dosage: STRENGTH: 500 MG.
     Route: 048
     Dates: start: 20191108

REACTIONS (2)
  - Gastrointestinal haemorrhage [Unknown]
  - Faeces discoloured [Unknown]

NARRATIVE: CASE EVENT DATE: 201912
